FAERS Safety Report 5988672-1 (Version None)
Quarter: 2008Q4

REPORT INFORMATION
  Report Type: 
  Country: None (occurrence: None)
  Receive Date: 20081210
  Receipt Date: 20081126
  Transmission Date: 20090506
  Serious: Yes (Other)
  Sender: FDA-Public Use
  Company Number: PHBS2008JP06176

PATIENT
  Age: 6 Year
  Sex: Male

DRUGS (5)
  1. NEORAL [Suspect]
     Indication: FOCAL SEGMENTAL GLOMERULOSCLEROSIS
     Dosage: 3.1 MG/KG DAILY
  2. METHYLPREDNISOLONE 16MG TAB [Suspect]
     Indication: FOCAL SEGMENTAL GLOMERULOSCLEROSIS
  3. PREDNISOLONE [Suspect]
     Indication: FOCAL SEGMENTAL GLOMERULOSCLEROSIS
     Dosage: 10 MG/KG
     Route: 048
  4. PREDNISOLONE [Suspect]
     Dosage: 0.25 MG/KG
  5. MIZORIBINE [Concomitant]
     Indication: FOCAL SEGMENTAL GLOMERULOSCLEROSIS
     Dosage: 150 MG/DAY

REACTIONS (6)
  - BODY HEIGHT BELOW NORMAL [None]
  - CATARACT [None]
  - FOCAL SEGMENTAL GLOMERULOSCLEROSIS [None]
  - NEPHROPATHY TOXIC [None]
  - OSTEOPOROSIS [None]
  - PROTEINURIA [None]
